FAERS Safety Report 11924437 (Version 1)
Quarter: 2016Q1

REPORT INFORMATION
  Report Type: Spontaneous
  Country: US (occurrence: US)
  Receive Date: 20160118
  Receipt Date: 20160118
  Transmission Date: 20160526
  Serious: Yes (Life-Threatening, Hospitalization)
  Sender: FDA-Public Use
  Company Number: US-BAUSCH-BL-2016-001404

PATIENT
  Age: 25 Year
  Sex: Male
  Weight: 80 kg

DRUGS (21)
  1. ERTAPENEM [Concomitant]
     Active Substance: ERTAPENEM
     Indication: ANTIBIOTIC PROPHYLAXIS
  2. FENTANYL. [Interacting]
     Active Substance: FENTANYL
     Route: 042
  3. CEFAZOLIN [Concomitant]
     Active Substance: CEFAZOLIN
     Indication: PRODUCT USED FOR UNKNOWN INDICATION
     Route: 042
  4. GLYCOPYRRONIUM [Concomitant]
     Active Substance: GLYCOPYRRONIUM
     Indication: PRODUCT USED FOR UNKNOWN INDICATION
     Route: 042
  5. FLUOXETINE HYDROCHLORIDE. [Interacting]
     Active Substance: FLUOXETINE HYDROCHLORIDE
     Indication: DEPRESSION
     Route: 042
  6. SUCCINYLCHOLINE CHLORIDE. [Concomitant]
     Active Substance: SUCCINYLCHOLINE CHLORIDE
     Indication: PRODUCT USED FOR UNKNOWN INDICATION
     Route: 042
  7. OXYGEN. [Concomitant]
     Active Substance: OXYGEN
     Indication: PRODUCT USED FOR UNKNOWN INDICATION
  8. HYDROMORPHONE [Concomitant]
     Active Substance: HYDROMORPHONE
     Indication: PRODUCT USED FOR UNKNOWN INDICATION
     Route: 042
  9. MORPHINE [Concomitant]
     Active Substance: MORPHINE
     Indication: PRODUCT USED FOR UNKNOWN INDICATION
  10. METOCLOPRAMIDE. [Interacting]
     Active Substance: METOCLOPRAMIDE
     Indication: PRODUCT USED FOR UNKNOWN INDICATION
     Route: 042
  11. METHYLTHIONINIUM CHLORIDE [Interacting]
     Active Substance: METHYLENE BLUE
     Indication: PRODUCT USED FOR UNKNOWN INDICATION
     Dosage: 100 MG WAS INTRAVENOUSLY ADMINISTERED TWICE
     Route: 042
  12. FENTANYL. [Interacting]
     Active Substance: FENTANYL
     Indication: PAIN
     Route: 042
  13. MIDAZOLAM [Concomitant]
     Active Substance: MIDAZOLAM\MIDAZOLAM HYDROCHLORIDE
     Indication: PRODUCT USED FOR UNKNOWN INDICATION
     Route: 042
  14. NEOSTIGMINE [Concomitant]
     Active Substance: NEOSTIGMINE
     Indication: PRODUCT USED FOR UNKNOWN INDICATION
     Route: 042
  15. METRONIDAZOLE. [Suspect]
     Active Substance: METRONIDAZOLE
     Indication: PRODUCT USED FOR UNKNOWN INDICATION
     Route: 042
  16. PROPOFOL. [Concomitant]
     Active Substance: PROPOFOL
     Indication: PRODUCT USED FOR UNKNOWN INDICATION
     Route: 042
  17. SEVOFLURANE. [Concomitant]
     Active Substance: SEVOFLURANE
     Indication: PRODUCT USED FOR UNKNOWN INDICATION
  18. HALOPERIDOL. [Concomitant]
     Active Substance: HALOPERIDOL
     Indication: PRODUCT USED FOR UNKNOWN INDICATION
     Route: 042
  19. ONDANSETRON [Interacting]
     Active Substance: ONDANSETRON
     Indication: PRODUCT USED FOR UNKNOWN INDICATION
     Route: 042
  20. CISATRACURIUM. [Concomitant]
     Active Substance: CISATRACURIUM
     Indication: PRODUCT USED FOR UNKNOWN INDICATION
     Route: 042
  21. ETOMIDATE. [Concomitant]
     Active Substance: ETOMIDATE
     Indication: PRODUCT USED FOR UNKNOWN INDICATION
     Route: 042

REACTIONS (8)
  - Serotonin syndrome [Unknown]
  - Rhabdomyolysis [Unknown]
  - White blood cell count increased [Unknown]
  - Appendicitis perforated [Unknown]
  - Pseudomonal sepsis [Unknown]
  - Drug interaction [Unknown]
  - Blood creatinine increased [Recovered/Resolved]
  - Metabolic acidosis [Unknown]
